FAERS Safety Report 9361105 (Version 1)
Quarter: 2013Q2

REPORT INFORMATION
  Report Type: Spontaneous
  Country: US (occurrence: US)
  Receive Date: 20130621
  Receipt Date: 20130621
  Transmission Date: 20140414
  Serious: Yes (Hospitalization)
  Sender: FDA-Public Use
  Company Number: US-SANOFI-AVENTIS-2013SA052062

PATIENT
  Sex: Female

DRUGS (1)
  1. AUBAGIO [Suspect]
     Route: 048
     Dates: start: 20130514

REACTIONS (11)
  - Loss of consciousness [Unknown]
  - Face injury [Unknown]
  - Migraine [Unknown]
  - Abdominal discomfort [Unknown]
  - Headache [Unknown]
  - Insomnia [Unknown]
  - Vision blurred [Unknown]
  - White blood cell count increased [Unknown]
  - Blood electrolytes decreased [Unknown]
  - Nausea [Unknown]
  - Oedema peripheral [Unknown]
